FAERS Safety Report 11186316 (Version 2)
Quarter: 2015Q2

REPORT INFORMATION
  Report Type: Spontaneous
  Country: DE (occurrence: DE)
  Receive Date: 20150612
  Receipt Date: 20150626
  Transmission Date: 20150821
  Serious: Yes (Other)
  Sender: FDA-Public Use
  Company Number: PHHY2015DE068443

PATIENT
  Age: 56 Year
  Sex: Male

DRUGS (6)
  1. ENBREL [Suspect]
     Active Substance: ETANERCEPT
     Indication: PSORIASIS
     Route: 065
  2. NEOTIGASON [Suspect]
     Active Substance: ACITRETIN
     Indication: PSORIASIS
     Route: 065
  3. CICLOSPORIN 1 A PHARMA [Suspect]
     Active Substance: CYCLOSPORINE
     Indication: MALIGNANT MELANOMA
     Route: 065
  4. METHOTREXATE [Suspect]
     Active Substance: METHOTREXATE
     Indication: MALIGNANT MELANOMA
     Route: 065
  5. HUMIRA [Suspect]
     Active Substance: ADALIMUMAB
     Indication: PSORIASIS
     Route: 065
  6. REMICADE [Suspect]
     Active Substance: INFLIXIMAB
     Indication: PSORIASIS
     Route: 065

REACTIONS (4)
  - Hyperkeratosis [Unknown]
  - Keratoacanthoma [Unknown]
  - Drug ineffective [Unknown]
  - Blood pressure increased [Unknown]
